FAERS Safety Report 19871230 (Version 1)
Quarter: 2021Q3

REPORT INFORMATION
  Report Type: Spontaneous
  Country: FR (occurrence: FR)
  Receive Date: 20210923
  Receipt Date: 20210923
  Transmission Date: 20211014
  Serious: Yes (Hospitalization, Other)
  Sender: FDA-Public Use
  Company Number: FR-AUROBINDO-AUR-APL-2021-039741

PATIENT
  Age: 94 Year
  Sex: Male

DRUGS (4)
  1. IRBESARTAN  TABLETS [Suspect]
     Active Substance: IRBESARTAN
     Indication: HYPERTENSION
     Dosage: UNK
     Route: 048
  2. FINASTERIDE. [Suspect]
     Active Substance: FINASTERIDE
     Indication: BENIGN PROSTATIC HYPERPLASIA
     Dosage: 1 DOSAGE FORM, ONCE A DAY
     Route: 065
     Dates: start: 2018
  3. AMIODARONE [Concomitant]
     Active Substance: AMIODARONE
     Indication: ATRIAL FIBRILLATION
     Dosage: UNK
     Route: 048
  4. TAMSULOSINE [Suspect]
     Active Substance: TAMSULOSIN HYDROCHLORIDE
     Indication: BENIGN PROSTATIC HYPERPLASIA
     Dosage: 1 DOSAGE FORM, ONCE A DAY
     Route: 048
     Dates: start: 2018

REACTIONS (4)
  - Pollakiuria [Not Recovered/Not Resolved]
  - Fall [Recovering/Resolving]
  - Drug ineffective [Not Recovered/Not Resolved]
  - Syncope [Recovering/Resolving]
